FAERS Safety Report 8456100-2 (Version None)
Quarter: 2012Q2

REPORT INFORMATION
  Report Type: 
  Country: None (occurrence: None)
  Receive Date: 20120621
  Receipt Date: 20120618
  Transmission Date: 20120825
  Serious: Yes (Death, Disabling, Other)
  Sender: FDA-Public Use
  Company Number: PHEH2012US011536

PATIENT
  Sex: Female
  Weight: 58.322 kg

DRUGS (2)
  1. AROMASIN [Suspect]
     Indication: BREAST CANCER
     Dosage: 25 MG, QD
     Dates: start: 20120126
  2. AFINITOR [Suspect]
     Dates: start: 20120201

REACTIONS (9)
  - GASTROINTESTINAL HAEMORRHAGE [None]
  - BLOOD PRESSURE SYSTOLIC DECREASED [None]
  - WEIGHT DECREASED [None]
  - ABDOMINAL DISTENSION [None]
  - OEDEMA PERIPHERAL [None]
  - NEOPLASM MALIGNANT [None]
  - ASTHENIA [None]
  - HYPOPHAGIA [None]
  - NEOPLASM PROGRESSION [None]
